FAERS Safety Report 7512482-7 (Version None)
Quarter: 2011Q2

REPORT INFORMATION
  Report Type: 
  Country: None (occurrence: None)
  Receive Date: 20110525
  Receipt Date: 20110525
  Transmission Date: 20111010
  Serious: Yes (Life-Threatening, Other)
  Sender: FDA-Public Use
  Company Number: None

PATIENT
  Sex: Male
  Weight: 70 kg

DRUGS (2)
  1. EPILIN CHRONO 500 - 1500 MG [Suspect]
     Dosage: 500-1500 MG NOCT. ORAL
     Route: 048
  2. ZYPREXA [Suspect]
     Indication: BIPOLAR DISORDER
     Dosage: 5MG 1/NOCT. ORAL
     Route: 048
     Dates: start: 20010101, end: 20100101

REACTIONS (9)
  - WEIGHT DECREASED [None]
  - ANXIETY [None]
  - PSYCHOTIC DISORDER [None]
  - PARANOIA [None]
  - INSOMNIA [None]
  - HALLUCINATION, AUDITORY [None]
  - WEIGHT INCREASED [None]
  - NIGHT SWEATS [None]
  - SUICIDAL IDEATION [None]
